FAERS Safety Report 9713508 (Version 2)
Quarter: 2013Q4

REPORT INFORMATION
  Report Type: Spontaneous
  Country: US (occurrence: US)
  Receive Date: 20131126
  Receipt Date: 20131204
  Transmission Date: 20140711
  Serious: Yes (Hospitalization)
  Sender: FDA-Public Use
  Company Number: US-BAXTER-2013BAX046426

PATIENT
  Sex: Female

DRUGS (1)
  1. DIANEAL PD2 [Suspect]
     Indication: PERITONEAL DIALYSIS
     Route: 033

REACTIONS (6)
  - Hereditary disorder [Recovered/Resolved]
  - Lung disorder [Recovered/Resolved]
  - Nephropathy [Recovered/Resolved]
  - Osteogenesis imperfecta [Recovered/Resolved]
  - Lung disorder [Unknown]
  - Anaemia [Recovered/Resolved]
